FAERS Safety Report 4988453-1 (Version None)
Quarter: 2006Q2

REPORT INFORMATION
  Report Type: 
  Country: None (occurrence: None)
  Receive Date: 20060426
  Receipt Date: 20060417
  Transmission Date: 20061013
  Serious: Yes (Hospitalization)
  Sender: FDA-Public Use
  Company Number: 2006052584

PATIENT
  Sex: Male

DRUGS (1)
  1. ROLAIDS [Suspect]
     Indication: DYSPEPSIA
     Dosage: 2 TO 3 TABLETS ONCE A DAY, ORAL
     Route: 048
     Dates: start: 20051101

REACTIONS (1)
  - HYPERTENSION [None]
